FAERS Safety Report 7939370-6 (Version None)
Quarter: 2011Q4

REPORT INFORMATION
  Report Type: 
  Country: None (occurrence: None)
  Receive Date: 20111125
  Receipt Date: 20111115
  Transmission Date: 20120403
  Serious: Yes (Hospitalization)
  Sender: FDA-Public Use
  Company Number: US-BAYER-201039299NA

PATIENT
  Age: 22 Year
  Sex: Female
  Weight: 88.435 kg

DRUGS (1)
  1. YASMIN [Suspect]
     Indication: CONTRACEPTION
     Route: 048
     Dates: start: 20060620, end: 20071201

REACTIONS (2)
  - ABDOMINAL PAIN [None]
  - CHOLECYSTITIS CHRONIC [None]
